FAERS Safety Report 17872414 (Version 1)
Quarter: 2020Q2

REPORT INFORMATION
  Report Type: Report from Study
  Country: US (occurrence: US)
  Receive Date: 20200608
  Receipt Date: 20200608
  Transmission Date: 20200714
  Serious: Yes (Hospitalization)
  Sender: FDA-Public Use
  Company Number: US-NOVOPROD-731935

PATIENT
  Age: 70 Year
  Sex: Female

DRUGS (2)
  1. ZORTRESS [Concomitant]
     Active Substance: EVEROLIMUS
     Indication: LIVER TRANSPLANT REJECTION
     Dosage: UNK
     Route: 065
  2. NOVOLOG [Suspect]
     Active Substance: INSULIN ASPART
     Indication: DIABETES MELLITUS
     Dosage: 1 IU, QID (DEPENDING ON NUMBER PER SLIDING SCALE)
     Route: 058
     Dates: start: 2017

REACTIONS (1)
  - Neuropathy peripheral [Unknown]
